FAERS Safety Report 6456121-5 (Version None)
Quarter: 2009Q4

REPORT INFORMATION
  Report Type: 
  Country: None (occurrence: None)
  Receive Date: 20091125
  Receipt Date: 20091118
  Transmission Date: 20100525
  Serious: Yes (Other)
  Sender: FDA-Public Use
  Company Number: JP-JNJFOC-20091106907

PATIENT
  Sex: Male
  Weight: 60 kg

DRUGS (22)
  1. REMICADE [Suspect]
     Route: 042
  2. REMICADE [Suspect]
     Dosage: INFUSION 7-12 ON UNSPECIFIED DATES
     Route: 042
  3. REMICADE [Suspect]
     Route: 042
  4. REMICADE [Suspect]
     Route: 042
  5. REMICADE [Suspect]
     Route: 042
  6. REMICADE [Suspect]
     Route: 042
  7. REMICADE [Suspect]
     Route: 042
  8. REMICADE [Suspect]
     Indication: BEHCET'S SYNDROME
     Route: 042
  9. ISCOTIN [Concomitant]
     Indication: ANTIBIOTIC PROPHYLAXIS
     Route: 048
  10. COLCHICINE [Concomitant]
     Indication: BEHCET'S SYNDROME
     Route: 048
  11. PREDONINE [Concomitant]
     Route: 048
  12. PREDONINE [Concomitant]
     Route: 048
  13. PREDONINE [Concomitant]
     Route: 048
  14. PREDONINE [Concomitant]
     Route: 048
  15. PREDONINE [Concomitant]
     Route: 048
  16. PREDONINE [Concomitant]
     Indication: BEHCET'S SYNDROME
     Route: 048
  17. ZEFIX [Concomitant]
     Indication: PROPHYLAXIS
     Route: 048
  18. VITAMEDIN [Concomitant]
     Indication: BEHCET'S SYNDROME
     Route: 048
  19. CINAL [Concomitant]
     Indication: BEHCET'S SYNDROME
     Route: 048
  20. SELBEX [Concomitant]
     Indication: GASTRIC ULCER
     Route: 048
  21. MAGNESIUM OXIDE [Concomitant]
     Indication: GASTRIC ULCER
     Route: 048
  22. PARIET [Concomitant]
     Indication: GASTRIC ULCER
     Route: 048

REACTIONS (1)
  - SCLERITIS [None]
